APPROVED DRUG PRODUCT: NALFON
Active Ingredient: FENOPROFEN CALCIUM
Strength: EQ 400MG BASE **Federal Register determination that product was not discontinued or withdrawn for safety or effectiveness reasons**
Dosage Form/Route: CAPSULE;ORAL
Application: N017604 | Product #004
Applicant: PHARMACO LLC
Approved: Jul 21, 2009 | RLD: Yes | RS: No | Type: DISCN